FAERS Safety Report 5735473-5 (Version None)
Quarter: 2008Q2

REPORT INFORMATION
  Report Type: 
  Country: None (occurrence: None)
  Receive Date: 20080512
  Receipt Date: 20080501
  Transmission Date: 20081010
  Serious: Yes (Hospitalization)
  Sender: FDA-Public Use
  Company Number: KW-PFIZER INC-2008038933

PATIENT
  Age: 75 Year
  Sex: Female

DRUGS (6)
  1. LIPITOR [Suspect]
     Dosage: DAILY DOSE:10MG
  2. NORVASC [Suspect]
  3. ASPIRIN [Suspect]
     Dosage: DAILY DOSE:100MG
  4. FUROSEMIDE [Suspect]
     Dosage: DAILY DOSE:40MG
  5. DIAMICRON MR [Suspect]
     Dosage: DAILY DOSE:60MG
  6. WARFARIN SODIUM [Suspect]
     Dosage: DAILY DOSE:4MG

REACTIONS (2)
  - ACUTE LEFT VENTRICULAR FAILURE [None]
  - ACUTE PULMONARY OEDEMA [None]
